FAERS Safety Report 7894475-3 (Version None)
Quarter: 2011Q4

REPORT INFORMATION
  Report Type: 
  Country: None (occurrence: None)
  Receive Date: 20111106
  Receipt Date: 20110822
  Transmission Date: 20120403
  Serious: No
  Sender: FDA-Public Use
  Company Number: US-AMGEN-USASP2011042692

PATIENT
  Sex: Female

DRUGS (1)
  1. ENBREL [Suspect]
     Indication: PSORIATIC ARTHROPATHY
     Dosage: 50 MG, QWK
     Dates: start: 20110601

REACTIONS (6)
  - FATIGUE [None]
  - ERUCTATION [None]
  - PAPULE [None]
  - LIP DISORDER [None]
  - BREAST DISCOMFORT [None]
  - HEADACHE [None]
